FAERS Safety Report 4753485-5 (Version None)
Quarter: 2005Q3

REPORT INFORMATION
  Report Type: 
  Country: None (occurrence: None)
  Receive Date: 20050824
  Receipt Date: 20050809
  Transmission Date: 20060218
  Serious: Yes (Death)
  Sender: FDA-Public Use
  Company Number: 2005BI015032

PATIENT
  Sex: Female

DRUGS (1)
  1. TYSABRI [Suspect]
     Indication: MULTIPLE SCLEROSIS
     Dosage: IV
     Route: 042
     Dates: start: 20041201, end: 20041201

REACTIONS (2)
  - AMYOTROPHIC LATERAL SCLEROSIS [None]
  - GENERAL PHYSICAL HEALTH DETERIORATION [None]
